FAERS Safety Report 8480290-9 (Version None)
Quarter: 2012Q2

REPORT INFORMATION
  Report Type: 
  Country: None (occurrence: None)
  Receive Date: 20120629
  Receipt Date: 20120615
  Transmission Date: 20120825
  Serious: No
  Sender: FDA-Public Use
  Company Number: US-ASTRAZENECA-2012SE25176

PATIENT
  Age: 63 Year
  Sex: Female
  Weight: 68 kg

DRUGS (9)
  1. CRESTOR [Suspect]
     Indication: BLOOD CHOLESTEROL INCREASED
     Route: 048
  2. LANTUS [Concomitant]
  3. CLARITIN [Concomitant]
     Indication: HYPERSENSITIVITY
  4. JANUMET [Concomitant]
     Indication: DIABETES MELLITUS
  5. ASPIRIN [Concomitant]
  6. CRESTOR [Suspect]
     Route: 048
  7. SIMVASTATIN [Concomitant]
  8. MICARDIS [Concomitant]
     Indication: BLOOD PRESSURE
  9. LEVOTHYROXINE SODIUM [Concomitant]

REACTIONS (1)
  - LARYNGITIS [None]
